FAERS Safety Report 7384475-4 (Version None)
Quarter: 2011Q1

REPORT INFORMATION
  Report Type: 
  Country: None (occurrence: None)
  Receive Date: 20110330
  Receipt Date: 20110317
  Transmission Date: 20110831
  Serious: Yes (Hospitalization)
  Sender: FDA-Public Use
  Company Number: US-WATSON-2011-03926

PATIENT
  Age: 32 Year
  Sex: Female

DRUGS (1)
  1. QUININE SULFATE [Suspect]
     Indication: SUICIDE ATTEMPT
     Dosage: 7.5 - 10 G, SINGLE
     Route: 048

REACTIONS (3)
  - INTENTIONAL OVERDOSE [None]
  - BLINDNESS [None]
  - RETINAL TOXICITY [None]
